FAERS Safety Report 9652343 (Version 2)
Quarter: 2014Q1

REPORT INFORMATION
  Report Type: Spontaneous
  Country: US (occurrence: US)
  Receive Date: 20131029
  Receipt Date: 20140128
  Transmission Date: 20141002
  Serious: No
  Sender: FDA-Public Use
  Company Number: US-BIOGENIDEC-2013BI075623

PATIENT
  Sex: Female

DRUGS (6)
  1. TECFIDERA [Suspect]
     Indication: MULTIPLE SCLEROSIS
     Route: 048
     Dates: start: 20130529
  2. FERRALET 90 [Concomitant]
  3. FENOFIBRATE [Concomitant]
  4. BENAZEPRIL HCL [Concomitant]
  5. CLONIDINE HCL [Concomitant]
  6. AMLODIPINE [Concomitant]

REACTIONS (4)
  - Extra dose administered [Unknown]
  - Pruritus [Unknown]
  - Rash [Unknown]
  - Flushing [Unknown]
